FAERS Safety Report 8818051 (Version 5)
Quarter: 2013Q2

REPORT INFORMATION
  Report Type: Spontaneous
  Country: US (occurrence: US)
  Receive Date: 20121001
  Receipt Date: 20130617
  Transmission Date: 20140414
  Serious: Yes (Hospitalization, Other)
  Sender: FDA-Public Use
  Company Number: US-009507513-2012SP034974

PATIENT
  Sex: Female
  Weight: 58.96 kg

DRUGS (1)
  1. NUVARING [Suspect]
     Indication: CONTRACEPTION
     Route: 067
     Dates: start: 20091027, end: 201007

REACTIONS (8)
  - Thrombectomy [Unknown]
  - Pulmonary embolism [Unknown]
  - Deep vein thrombosis [Not Recovered/Not Resolved]
  - Vena cava filter insertion [Unknown]
  - Venous stenosis [Unknown]
  - Limb operation [Unknown]
  - Urinary tract infection [Recovered/Resolved]
  - Pregnancy [Unknown]
